FAERS Safety Report 26169745 (Version 1)
Quarter: 2025Q4

REPORT INFORMATION
  Report Type: Spontaneous
  Country: US (occurrence: None)
  Receive Date: 20251216
  Receipt Date: 20251216
  Transmission Date: 20260118
  Serious: No
  Sender: FDA-CTU
  Company Number: None

PATIENT
  Age: 70 Year
  Sex: Male
  Weight: 82.8 kg

DRUGS (2)
  1. ETODOLAC [Suspect]
     Active Substance: ETODOLAC
     Indication: Bursitis
     Dosage: FREQUENCY : TWICE A DAY;
     Route: 048
     Dates: start: 20251209, end: 20251214
  2. Dual action Advil [Concomitant]

REACTIONS (3)
  - Oral herpes [None]
  - Oral herpes [None]
  - Therapy cessation [None]

NARRATIVE: CASE EVENT DATE: 20251214
